FAERS Safety Report 5036421-6 (Version None)
Quarter: 2006Q2

REPORT INFORMATION
  Report Type: 
  Country: None (occurrence: None)
  Receive Date: 20060628
  Receipt Date: 20060614
  Transmission Date: 20061013
  Serious: Yes (Death, Other)
  Sender: FDA-Public Use
  Company Number: SE-NOVOPROD-254110

PATIENT
  Age: 8 Year
  Sex: Female
  Weight: 37 kg

DRUGS (3)
  1. OCTREOTIDE ACETATE [Concomitant]
     Dosage: .67 UG/KG/H, UNK
  2. NOVOSEVEN [Suspect]
     Indication: HAEMORRHAGE
     Dosage: 64 UG/KG, UNK
  3. NOVOSEVEN [Suspect]
     Dosage: 64 UNK, UNK

REACTIONS (3)
  - FUNGAL SEPSIS [None]
  - MULTI-ORGAN FAILURE [None]
  - PORTAL VEIN THROMBOSIS [None]
